FAERS Safety Report 23601643 (Version 1)
Quarter: 2024Q1

REPORT INFORMATION
  Report Type: Spontaneous
  Country: US (occurrence: US)
  Receive Date: 20240306
  Receipt Date: 20240306
  Transmission Date: 20240409
  Serious: Yes (Death, Other)
  Sender: FDA-Public Use
  Company Number: US-SANDOZ-SDZ2024US021400

PATIENT
  Sex: Female

DRUGS (1)
  1. HEPARIN [Suspect]
     Active Substance: HEPARIN SODIUM
     Indication: Hypertensive end-organ damage
     Route: 065

REACTIONS (3)
  - Intracardiac thrombus [Fatal]
  - Haemorrhage intracranial [Fatal]
  - Neurological symptom [Fatal]
